FAERS Safety Report 4632983-9 (Version None)
Quarter: 2005Q2

REPORT INFORMATION
  Report Type: 
  Country: None (occurrence: None)
  Receive Date: 20050411
  Receipt Date: 20050411
  Transmission Date: 20051028
  Serious: Yes (Other)
  Sender: FDA-Public Use
  Company Number: None

PATIENT
  Age: 53 Year
  Sex: Female
  Weight: 64.4108 kg

DRUGS (4)
  1. LEVOTHYROXINE 50 MCG [Suspect]
     Indication: HYPOTHYROIDISM
     Dosage: 50 MCG DAILY ORAL
     Route: 048
     Dates: start: 20041001, end: 20050303
  2. PREMARIN [Concomitant]
  3. LIPITOR [Concomitant]
  4. WELLBUTRIN XL [Concomitant]

REACTIONS (4)
  - ALOPECIA [None]
  - INCREASED APPETITE [None]
  - PHARMACEUTICAL PRODUCT COMPLAINT [None]
  - TEMPERATURE INTOLERANCE [None]
